FAERS Safety Report 4672831-4 (Version None)
Quarter: 2005Q2

REPORT INFORMATION
  Report Type: 
  Country: None (occurrence: None)
  Receive Date: 20050524
  Receipt Date: 20050512
  Transmission Date: 20051028
  Serious: Yes (Other)
  Sender: FDA-Public Use
  Company Number: PHBS2005BE06902

PATIENT
  Age: 67 Year
  Sex: Female

DRUGS (10)
  1. ZOMETA [Suspect]
     Indication: METASTASES TO BONE
     Route: 065
     Dates: start: 20030207, end: 20050101
  2. CYCLOPHOSPHAMIDE + 5-FU + METHOTREXATE [Concomitant]
     Dates: start: 20030801, end: 20031127
  3. BONEFOS [Suspect]
     Dosage: 1600 MG/D
     Route: 065
     Dates: start: 20000210
  4. XELODA [Concomitant]
     Dates: start: 20040201, end: 20040803
  5. NAVELBINE [Concomitant]
     Dates: end: 20050101
  6. AROMASIN [Concomitant]
  7. ARIMIDEX [Concomitant]
  8. MEGACE [Concomitant]
  9. FASLODEX [Concomitant]
  10. NOLVADEX [Concomitant]

REACTIONS (9)
  - DRUG INEFFECTIVE [None]
  - METASTASES TO BONE [None]
  - METASTASES TO PERITONEUM [None]
  - OSTEOMYELITIS [None]
  - OSTEONECROSIS [None]
  - PRIMARY SEQUESTRUM [None]
  - PURULENCE [None]
  - TOOTH EXTRACTION [None]
  - WOUND DEBRIDEMENT [None]
